FAERS Safety Report 16131493 (Version 10)
Quarter: 2020Q2

REPORT INFORMATION
  Report Type: Report from Study
  Country: US (occurrence: US)
  Receive Date: 20190328
  Receipt Date: 20200602
  Transmission Date: 20200713
  Serious: Yes (Hospitalization)
  Sender: FDA-Public Use
  Company Number: US-ACTELION-A-NJ2019-188254

PATIENT
  Sex: Female
  Weight: 87.98 kg

DRUGS (3)
  1. OPSUMIT [Suspect]
     Active Substance: MACITENTAN
     Indication: PULMONARY ARTERIAL HYPERTENSION
     Dosage: 10 MG, QD
     Route: 048
     Dates: start: 20190305
  2. LETAIRIS [Concomitant]
     Active Substance: AMBRISENTAN
  3. WARFARIN [Concomitant]
     Active Substance: WARFARIN

REACTIONS (14)
  - Rash pruritic [Unknown]
  - Cellulitis [Unknown]
  - Product dose omission [Unknown]
  - Cardiac operation [Unknown]
  - Stress [Unknown]
  - Dyspnoea [Not Recovered/Not Resolved]
  - Localised infection [Unknown]
  - Hospitalisation [Unknown]
  - Feeling hot [Unknown]
  - Oedema [Unknown]
  - Syncope [Unknown]
  - Wound drainage [Unknown]
  - Skeletal injury [Unknown]
  - Aortic valve disease [Unknown]
